FAERS Safety Report 6453630-X (Version None)
Quarter: 2009Q4

REPORT INFORMATION
  Report Type: 
  Country: None (occurrence: None)
  Receive Date: 20091124
  Receipt Date: 20091109
  Transmission Date: 20100525
  Serious: Yes (Other)
  Sender: FDA-Public Use
  Company Number: PHHY2009JP48974

PATIENT
  Sex: Male

DRUGS (2)
  1. GLEEVEC [Suspect]
     Dosage: UNK
     Route: 048
     Dates: end: 20091001
  2. GLEEVEC [Suspect]
     Dosage: UNK
     Route: 048
     Dates: end: 20091101

REACTIONS (3)
  - FEELING ABNORMAL [None]
  - GASTROINTESTINAL DISORDER [None]
  - NERVOUSNESS [None]
